FAERS Safety Report 23536083 (Version 1)
Quarter: 2024Q1

REPORT INFORMATION
  Report Type: Spontaneous
  Country: US (occurrence: US)
  Receive Date: 20240219
  Receipt Date: 20240219
  Transmission Date: 20240410
  Serious: No
  Sender: FDA-Public Use
  Company Number: US-TEVA-VS-3157532

PATIENT
  Age: 4 Decade
  Sex: Female

DRUGS (2)
  1. CALCITRIOL [Suspect]
     Active Substance: CALCITRIOL
     Indication: Hypoparathyroidism
     Dosage: REQUIREMENT DECREASED BY 66%
     Route: 065
  2. CALCITRIOL [Suspect]
     Active Substance: CALCITRIOL
     Indication: Hypoparathyroidism
     Dosage: BASELINE
     Route: 065

REACTIONS (1)
  - Exposure during pregnancy [Unknown]
